FAERS Safety Report 5693497-0 (Version None)
Quarter: 2008Q2

REPORT INFORMATION
  Report Type: 
  Country: None (occurrence: None)
  Receive Date: 20080403
  Receipt Date: 20080326
  Transmission Date: 20081010
  Serious: Yes (Other)
  Sender: FDA-Public Use
  Company Number: A0719019A

PATIENT
  Age: 37 Year
  Sex: Female

DRUGS (7)
  1. LAMOTRIGINE [Suspect]
     Indication: BIPOLAR DISORDER
     Dosage: 400MG PER DAY
  2. ATIVAN [Concomitant]
     Dosage: .5VA PER DAY
  3. FOLIC ACID [Concomitant]
  4. VITAMIN TAB [Concomitant]
  5. PROGESTERONE [Concomitant]
     Dosage: 75MG PER DAY
  6. ESTRACE [Concomitant]
     Dosage: 6MG PER DAY
  7. CLIMARA [Concomitant]

REACTIONS (2)
  - LIVE BIRTH [None]
  - PRE-ECLAMPSIA [None]
